FAERS Safety Report 6305500-5 (Version None)
Quarter: 2009Q3

REPORT INFORMATION
  Report Type: 
  Country: None (occurrence: None)
  Receive Date: 20090807
  Receipt Date: 20090726
  Transmission Date: 20100115
  Serious: Yes (Death, Hospitalization, Disabling)
  Sender: FDA-Public Use
  Company Number: CERZ-11953

PATIENT
  Age: 57 Year
  Sex: Female
  Weight: 31 kg

DRUGS (4)
  1. CEREZYME [Suspect]
     Indication: GAUCHER'S DISEASE
     Dosage: 1800 U, Q2HR, INTRAVENOUS
     Route: 042
     Dates: start: 20010701, end: 20071009
  2. VALPROATE SODIUM [Concomitant]
  3. CLONAZEPAM [Concomitant]
  4. CEFDITOREN PIVOXIL (CEFDITOREN PIVOXIL) [Concomitant]

REACTIONS (10)
  - ANAEMIA [None]
  - CARDIO-RESPIRATORY ARREST [None]
  - CHOLELITHIASIS [None]
  - DECUBITUS ULCER [None]
  - DISEASE PROGRESSION [None]
  - GAUCHER'S DISEASE [None]
  - MOVEMENT DISORDER [None]
  - MUSCULOSKELETAL DISORDER [None]
  - MYOCLONIC EPILEPSY [None]
  - PEMPHIGOID [None]
